FAERS Safety Report 5395802-1 (Version None)
Quarter: 2007Q3

REPORT INFORMATION
  Report Type: 
  Country: None (occurrence: None)
  Receive Date: 20070724
  Receipt Date: 20070712
  Transmission Date: 20080115
  Serious: Yes (Hospitalization, Disabling, Other)
  Sender: FDA-Public Use
  Company Number: US-PFIZER INC-2006113982

PATIENT
  Sex: Female
  Weight: 66.2 kg

DRUGS (24)
  1. CELEBREX [Suspect]
     Indication: FIBROMYALGIA
  2. CELEBREX [Suspect]
     Indication: OSTEOARTHRITIS
  3. VIOXX [Suspect]
     Indication: FIBROMYALGIA
     Dosage: DAILY DOSE:225MG
     Dates: start: 20000301
  4. VIOXX [Suspect]
     Indication: OSTEOARTHRITIS
  5. CARISOPRODOL [Concomitant]
     Dates: start: 19981207, end: 20060101
  6. HYDROCODONE BITARTRATE [Concomitant]
     Dates: start: 19990703, end: 20031201
  7. APAP TAB [Concomitant]
     Dates: start: 20000229, end: 20000801
  8. LISINOPRIL [Concomitant]
     Dates: start: 20021006, end: 20030101
  9. PRINIVIL [Concomitant]
     Dates: start: 20010101, end: 20020101
  10. VALSARTAN [Concomitant]
     Dates: start: 19980323
  11. TOPROL-XL [Concomitant]
  12. NORVASC [Concomitant]
     Dates: start: 19991101, end: 20030101
  13. FUROSEMIDE [Concomitant]
  14. ISOSORBIDE MONONITRATE [Concomitant]
     Dates: start: 20010227, end: 20030101
  15. NITROQUICK [Concomitant]
     Dates: start: 20010206, end: 20010301
  16. HEPARIN [Concomitant]
     Dates: start: 20010101, end: 20060101
  17. ASPIRIN [Concomitant]
     Dates: start: 20010101
  18. PLAVIX [Concomitant]
  19. COLESTID [Concomitant]
     Dates: start: 20010209, end: 20060101
  20. LIPITOR [Concomitant]
     Dates: start: 19991101
  21. NEURONTIN [Concomitant]
     Dates: start: 20010602, end: 20041101
  22. SKELAXIN [Concomitant]
     Dates: start: 20010323, end: 20050101
  23. SYNTHROID [Concomitant]
     Dates: start: 19980225, end: 20060101
  24. K-DUR 10 [Concomitant]
     Dates: start: 20010330, end: 20050501

REACTIONS (3)
  - CARDIOVASCULAR DISORDER [None]
  - CORONARY ARTERY DISEASE [None]
  - MYOCARDIAL INFARCTION [None]
